FAERS Safety Report 16918029 (Version 1)
Quarter: 2019Q4

REPORT INFORMATION
  Report Type: Spontaneous
  Country: CN (occurrence: CN)
  Receive Date: 20191015
  Receipt Date: 20191015
  Transmission Date: 20200122
  Serious: Yes (Hospitalization, Other)
  Sender: FDA-Public Use
  Company Number: CN-SA-2019SA281513

PATIENT
  Age: 36 Year
  Sex: Female
  Weight: 46 kg

DRUGS (5)
  1. ELOXATIN [Suspect]
     Active Substance: OXALIPLATIN
     Indication: COLON CANCER
     Dosage: 100 MG, QD
     Route: 041
     Dates: start: 20190830, end: 20190830
  2. GLUCOSE [Concomitant]
     Active Substance: DEXTROSE
     Indication: COLON CANCER
     Dosage: 500 ML
     Route: 041
     Dates: start: 20190830, end: 20190830
  3. FLUOROURACIL. [Suspect]
     Active Substance: FLUOROURACIL
     Indication: COLON CANCER
     Dosage: 2.75 G, QD
     Route: 042
     Dates: start: 20190830, end: 20190830
  4. SODIUM CHLORIDE. [Concomitant]
     Active Substance: SODIUM CHLORIDE
     Dosage: 100 ML, QD
     Route: 041
     Dates: start: 20190830, end: 20190830
  5. CAMPTO [Suspect]
     Active Substance: IRINOTECAN
     Indication: COLON CANCER
     Dosage: 200 MG, QD
     Route: 041
     Dates: start: 20190830, end: 20190830

REACTIONS (1)
  - Bone marrow failure [Recovering/Resolving]

NARRATIVE: CASE EVENT DATE: 20190912
